FAERS Safety Report 20830652 (Version 5)
Quarter: 2022Q3

REPORT INFORMATION
  Report Type: Spontaneous
  Country: US (occurrence: US)
  Receive Date: 20220514
  Receipt Date: 20220916
  Transmission Date: 20221027
  Serious: Yes (Other)
  Sender: FDA-Public Use
  Company Number: US-SA-SAC20220510001770

PATIENT
  Age: 56 Year
  Sex: Female
  Weight: 108.4 kg

DRUGS (22)
  1. AUBAGIO [Suspect]
     Active Substance: TERIFLUNOMIDE
     Indication: Multiple sclerosis
     Dosage: 14 MG, QD
     Route: 048
     Dates: start: 20210222
  2. AUBAGIO [Suspect]
     Active Substance: TERIFLUNOMIDE
     Dosage: 14 MG, QD
     Route: 048
     Dates: start: 20210720
  3. AUBAGIO [Suspect]
     Active Substance: TERIFLUNOMIDE
     Dosage: 14 MG, QD
     Route: 048
     Dates: start: 20220309
  4. ZYRTEC [Concomitant]
     Active Substance: CETIRIZINE HYDROCHLORIDE
     Indication: Hypersensitivity
     Dosage: 10 MG, QD
     Route: 048
     Dates: start: 20200811
  5. CLARITHROMYCIN [Concomitant]
     Active Substance: CLARITHROMYCIN
  6. VITAMIN D3 [Concomitant]
     Active Substance: CHOLECALCIFEROL
     Dosage: 2000-5000 IU DAILY
  7. VITAMIN B COMPLEX [Concomitant]
     Active Substance: CYANOCOBALAMIN\DEXPANTHENOL\NIACINAMIDE\PYRIDOXINE HYDROCHLORIDE\RIBOFLAVIN 5^-PHOSPHATE SODIUM\THIA
     Dosage: UNK UNK, QD
  8. ALPHA LIPOIC ACID [Concomitant]
     Active Substance: .ALPHA.-LIPOIC ACID
     Dosage: 600 MG, BID
     Route: 048
  9. ACETAMINOPHEN [Concomitant]
     Active Substance: ACETAMINOPHEN
     Indication: Pain
     Dosage: 650 MG, Q6H
     Route: 048
  10. VITAMIN C [Concomitant]
     Active Substance: ASCORBIC ACID
     Dosage: UNK UNK, QD
     Route: 048
     Dates: start: 20210405
  11. BIOTIN [Concomitant]
     Active Substance: BIOTIN
     Dosage: UNK, QD
     Route: 048
     Dates: start: 20211208
  12. VITAMIN B12 [Concomitant]
     Active Substance: CYANOCOBALAMIN
     Route: 048
  13. IRON [FERROUS SULFATE] [Concomitant]
     Dosage: UNK, QD
     Route: 048
     Dates: start: 20200403
  14. FLAXSEED [Concomitant]
     Active Substance: FLAX SEED
     Route: 048
  15. MAGNESIUM [Concomitant]
     Active Substance: MAGNESIUM
     Dosage: 250 MG
     Route: 048
     Dates: start: 20201205
  16. MIRALAX [Concomitant]
     Active Substance: POLYETHYLENE GLYCOL 3350
     Indication: Constipation
     Dosage: 179 MG, PRN
     Route: 048
     Dates: start: 20200403
  17. MIRALAX [Concomitant]
     Active Substance: POLYETHYLENE GLYCOL 3350
     Dosage: 17 G, QD
     Route: 048
  18. VITAMIN D NOS [Concomitant]
     Active Substance: VITAMIN D NOS
     Dosage: UNK UNK, QD
     Route: 048
  19. N-ACETYLGLUCOSAMINE [Concomitant]
     Active Substance: N-ACETYLGLUCOSAMINE
     Dosage: 700 MG, QD
  20. VITAMIN B12 [Concomitant]
     Active Substance: CYANOCOBALAMIN
     Dosage: UNK, QD
     Route: 048
     Dates: start: 20200403
  21. VITAMIN D NOS [Concomitant]
     Active Substance: VITAMIN D NOS
     Dosage: UNK, QD
     Route: 048
     Dates: start: 20200403
  22. TYLENOL [Concomitant]
     Active Substance: ACETAMINOPHEN
     Indication: Pain
     Dosage: 650 MG, PRN
     Route: 048
     Dates: start: 20200403

REACTIONS (16)
  - Neurogenic bladder [Unknown]
  - Paraesthesia [Unknown]
  - Polyneuropathy [Unknown]
  - Urinary tract infection [Recovered/Resolved]
  - Enterococcal infection [Unknown]
  - Chest pain [Unknown]
  - Peripheral swelling [Unknown]
  - Gait disturbance [Unknown]
  - Dizziness [Unknown]
  - Enzyme level abnormal [Unknown]
  - Vitamin B complex deficiency [Unknown]
  - Urinary tract disorder [Unknown]
  - Oral herpes [Recovered/Resolved]
  - Fatigue [Unknown]
  - Arthralgia [Unknown]
  - Headache [Unknown]

NARRATIVE: CASE EVENT DATE: 20220512
